FAERS Safety Report 21833217 (Version 1)
Quarter: 2023Q1

REPORT INFORMATION
  Report Type: Spontaneous
  Country: US (occurrence: US)
  Receive Date: 20230106
  Receipt Date: 20230106
  Transmission Date: 20230418
  Serious: Yes (Hospitalization, Other)
  Sender: FDA-Public Use
  Company Number: US-AMGEN-USASP2022224262

PATIENT
  Age: 62 Year
  Sex: Male

DRUGS (1)
  1. INFLIXIMAB [Suspect]
     Active Substance: INFLIXIMAB
     Indication: Colitis ulcerative
     Dosage: UNK
     Route: 065

REACTIONS (11)
  - Mesenteric vein thrombosis [Unknown]
  - Portal vein phlebitis [Recovering/Resolving]
  - Colitis ulcerative [Recovering/Resolving]
  - Beta haemolytic streptococcal infection [Unknown]
  - Crohn^s disease [Unknown]
  - Diverticular perforation [Unknown]
  - Perineal abscess [Unknown]
  - Colonic abscess [Unknown]
  - Diverticulitis [Unknown]
  - Staphylococcal infection [Unknown]
  - Ill-defined disorder [Unknown]
